FAERS Safety Report 10807133 (Version 1)
Quarter: 2015Q1

REPORT INFORMATION
  Report Type: Report from Study
  Country: US (occurrence: US)
  Receive Date: 20150217
  Receipt Date: 20150217
  Transmission Date: 20150721
  Serious: No
  Sender: FDA-Public Use
  Company Number: US-ABBVIE-14K-163-1248472-00

PATIENT
  Age: 56 Year
  Sex: Female

DRUGS (3)
  1. HUMIRA [Suspect]
     Active Substance: ADALIMUMAB
     Indication: PRODUCT USED FOR UNKNOWN INDICATION
     Dosage: DAY ONE
     Dates: start: 20140531, end: 20140531
  2. HUMIRA [Suspect]
     Active Substance: ADALIMUMAB
     Dosage: DAY TWO
     Dates: start: 20140601, end: 20140601
  3. HUMIRA [Suspect]
     Active Substance: ADALIMUMAB
     Dates: start: 2014

REACTIONS (4)
  - Injection site bruising [Not Recovered/Not Resolved]
  - Injection site pain [Unknown]
  - Impaired healing [Unknown]
  - Oropharyngeal pain [Unknown]

NARRATIVE: CASE EVENT DATE: 2014
